FAERS Safety Report 6942210-5 (Version None)
Quarter: 2010Q3

REPORT INFORMATION
  Report Type: 
  Country: None (occurrence: None)
  Receive Date: 20100820
  Receipt Date: 20100122
  Transmission Date: 20110219
  Serious: No
  Sender: FDA-Public Use
  Company Number: 1-21142430

PATIENT
  Age: 74 Year
  Sex: Female
  Weight: 68.9467 kg

DRUGS (15)
  1. WARFARIN SODIUM [Suspect]
     Indication: ATRIAL FIBRILLATION
     Dosage: 4 MG DAILY, ORAL
     Route: 048
  2. WARFARIN SODIUM [Suspect]
     Indication: CEREBROVASCULAR ACCIDENT
     Dosage: 4 MG DAILY, ORAL
     Route: 048
  3. ALDACTONE [Concomitant]
  4. ALLOPURINOL [Concomitant]
  5. ASPIRIN [Concomitant]
  6. POTASSIUM [Concomitant]
  7. LANOXIN [Concomitant]
  8. LANTUS [Concomitant]
  9. LASIX [Concomitant]
  10. LIPITOR [Concomitant]
  11. LISINOPRIL [Concomitant]
  12. LOPRESSOR [Concomitant]
  13. LOVAZA [Concomitant]
  14. NOVOLOG [Concomitant]
  15. TRICOR [Concomitant]

REACTIONS (3)
  - INTERNATIONAL NORMALISED RATIO DECREASED [None]
  - MITRAL VALVE REPLACEMENT [None]
  - PRODUCT QUALITY ISSUE [None]
